FAERS Safety Report 4915688-6 (Version None)
Quarter: 2006Q1

REPORT INFORMATION
  Report Type: 
  Country: None (occurrence: None)
  Receive Date: 20060214
  Receipt Date: 20060207
  Transmission Date: 20060701
  Serious: Yes (Hospitalization)
  Sender: FDA-Public Use
  Company Number: TPA2006A00220

PATIENT
  Age: 39 Year
  Sex: Male
  Weight: 141.5223 kg

DRUGS (15)
  1. ACTOPLUS MET [Suspect]
     Indication: DIABETES MELLITUS NON-INSULIN-DEPENDENT
     Dosage: 15/850 MG, Q12H, PER ORAL
     Route: 048
     Dates: start: 20060112
  2. TOPROL-XL [Concomitant]
  3. DEPAKOTE ER (VALPROATE SEMISODIUM) (500 MILLIGRAM) [Concomitant]
  4. ALDACTONE (SPIRONOLACTONE) (50 MILLIGRAM) [Concomitant]
  5. SEROQUEL (QUETIAPINE FUMARATE) (200 MILLIGRAM) [Concomitant]
  6. CELEBREX (CELECOXIB) (200 MILLIGRAM) [Concomitant]
  7. COZAAR (LOSARTAN POTASSIUM) (50 MILLIGRAM) [Concomitant]
  8. VYTORIN (INEGY) [Concomitant]
  9. WELLBUTRIN XL (BUPROPION) (300 MILLIGRAM) [Concomitant]
  10. LASIX (FUROSEMIDE) (40 MILLIGRAM) [Concomitant]
  11. KLONOPIN (CLONAZEPAM) (2 MILLIGRAM) [Concomitant]
  12. HUMULIN 70/30 [Concomitant]
  13. NITROQUICK (GLYCERYL TRINITRATE) (0.4 MILLIGRAM) [Concomitant]
  14. KLOR-CON (POTASSIUM CHLORIDE) (20 MILLIEQUIVALENTS) [Concomitant]
  15. OXYGEN (OXYGEN) [Concomitant]

REACTIONS (3)
  - BLOOD GLUCOSE INCREASED [None]
  - CHEST PAIN [None]
  - CORONARY ARTERY DISEASE [None]
